FAERS Safety Report 7233148-7 (Version None)
Quarter: 2011Q1

REPORT INFORMATION
  Report Type: 
  Country: None (occurrence: None)
  Receive Date: 20110106
  Receipt Date: 20101122
  Transmission Date: 20110831
  Serious: Yes (Life-Threatening)
  Sender: FDA-Public Use
  Company Number: 2010P1002841

PATIENT
  Age: 78 Year
  Sex: Female

DRUGS (9)
  1. BENZOCAINE (NO PREF. NAME) [Suspect]
     Indication: ECHOCARDIOGRAM
     Dosage: X1;TOP
     Route: 061
  2. CLOPIDOGREL [Concomitant]
  3. PIOGLITAZONE [Concomitant]
  4. VISCOUS (LIDOCAINE 2% (NO PREF. NAME) [Suspect]
     Indication: ECHOCARDIOGRAM
     Dosage: X1;TOP
     Route: 061
  5. ENOXAPARIN [Concomitant]
  6. ASPIRIN [Concomitant]
  7. CLONIDINE [Concomitant]
  8. PANTOPRAZOLE [Concomitant]
  9. METOPROLOL [Concomitant]

REACTIONS (9)
  - CONFUSIONAL STATE [None]
  - ANXIETY [None]
  - ACUTE RESPIRATORY DISTRESS SYNDROME [None]
  - UNRESPONSIVE TO STIMULI [None]
  - HYPERHIDROSIS [None]
  - CYANOSIS [None]
  - METHAEMOGLOBINAEMIA [None]
  - SINUS TACHYCARDIA [None]
  - CARDIOMEGALY [None]
